FAERS Safety Report 18674161 (Version 4)
Quarter: 2021Q1

REPORT INFORMATION
  Report Type: Report from Study
  Country: US (occurrence: US)
  Receive Date: 20201229
  Receipt Date: 20210212
  Transmission Date: 20210419
  Serious: Yes (Hospitalization, Other)
  Sender: FDA-Public Use
  Company Number: US-GILEAD-2020-0510240

PATIENT
  Age: 48 Year
  Sex: Female

DRUGS (4)
  1. XARELTO [Concomitant]
     Active Substance: RIVAROXABAN
  2. SILDENAFIL. [Concomitant]
     Active Substance: SILDENAFIL
  3. AMBRISENTAN [Suspect]
     Active Substance: AMBRISENTAN
     Indication: PULMONARY HYPERTENSION
     Dosage: 10 MG, QD
     Route: 048
     Dates: start: 20200422
  4. UPTRAVI [Concomitant]
     Active Substance: SELEXIPAG

REACTIONS (9)
  - Heart rate increased [Unknown]
  - Leukaemia [Not Recovered/Not Resolved]
  - Erythema [Unknown]
  - Cardiac operation [Unknown]
  - Blood iron decreased [Not Recovered/Not Resolved]
  - Syncope [Unknown]
  - Pain in jaw [Unknown]
  - Headache [Unknown]
  - Myocardial infarction [Unknown]

NARRATIVE: CASE EVENT DATE: 20201114
